FAERS Safety Report 7924915-2 (Version None)
Quarter: 2011Q4

REPORT INFORMATION
  Report Type: 
  Country: None (occurrence: None)
  Receive Date: 20111118
  Receipt Date: 20110330
  Transmission Date: 20120403
  Serious: No
  Sender: FDA-Public Use
  Company Number: US-AMGEN-USASP2011016860

PATIENT
  Age: 69 Year
  Sex: Female
  Weight: 67.12 kg

DRUGS (5)
  1. ENBREL [Suspect]
     Indication: PRODUCT USED FOR UNKNOWN INDICATION
     Dosage: 50 MG, QWK
  2. FISH OIL [Concomitant]
  3. CALCIUM [Concomitant]
     Dosage: 500 MG, UNK
  4. GLUCOSAMINE [Concomitant]
     Dosage: 1000 MG, UNK
  5. YEAST [Concomitant]

REACTIONS (1)
  - TREMOR [None]
